FAERS Safety Report 22635830 (Version 1)
Quarter: 2023Q2

REPORT INFORMATION
  Report Type: Spontaneous
  Country: NL (occurrence: NL)
  Receive Date: 20230623
  Receipt Date: 20230623
  Transmission Date: 20230721
  Serious: Yes (Hospitalization)
  Sender: FDA-Public Use
  Company Number: None

PATIENT
  Sex: Male
  Weight: 77 kg

DRUGS (1)
  1. COLCHICINE [Suspect]
     Active Substance: COLCHICINE
     Indication: Product used for unknown indication
     Dosage: 2 X PER DAY 1 PIECE
     Route: 065
     Dates: start: 20230509

REACTIONS (4)
  - Diarrhoea [Recovering/Resolving]
  - Muscular weakness [Recovering/Resolving]
  - Pericardial effusion [Recovering/Resolving]
  - Oropharyngeal pain [Recovering/Resolving]
